FAERS Safety Report 6390126-8 (Version None)
Quarter: 2009Q4

REPORT INFORMATION
  Report Type: 
  Country: None (occurrence: None)
  Receive Date: 20091003
  Receipt Date: 20090922
  Transmission Date: 20100525
  Serious: Yes (Hospitalization)
  Sender: FDA-Public Use
  Company Number: 2009US000364

PATIENT
  Age: 48 Year
  Sex: Female
  Weight: 83.4 kg

DRUGS (3)
  1. AMEVIVE [Suspect]
     Indication: PSORIASIS
     Dosage: 15 MG, WEEKLY, INTRAMUSCULAR
     Route: 030
     Dates: start: 20051230, end: 20060324
  2. RAPTIVA [Concomitant]
  3. METHOTREXATE [Concomitant]

REACTIONS (3)
  - CHEST PAIN [None]
  - HYPOTENSION [None]
  - PROCEDURAL PAIN [None]
